FAERS Safety Report 18704616 (Version 1)
Quarter: 2021Q1

REPORT INFORMATION
  Report Type: Spontaneous
  Country: US (occurrence: US)
  Receive Date: 20210105
  Receipt Date: 20210105
  Transmission Date: 20210419
  Serious: Yes (Hospitalization)
  Sender: FDA-Public Use
  Company Number: US-FRESENIUS KABI-FK202100124

PATIENT
  Age: 55 Year
  Sex: Male

DRUGS (7)
  1. HYDROXYZINE (MANUFACTURER UNKNOWN) [Suspect]
     Active Substance: HYDROXYZINE HYDROCHLORIDE
     Indication: SUICIDAL IDEATION
     Dosage: UNKNOWN
     Route: 065
  2. QUETIAPINE. [Suspect]
     Active Substance: QUETIAPINE
     Indication: SUICIDAL IDEATION
     Dosage: UNKNOWN
     Route: 065
  3. BENZTROPINE INJECTION (MANUFACTURER UNKNOWN) [Suspect]
     Active Substance: BENZTROPINE
     Indication: SUICIDAL IDEATION
     Dosage: UNKNOWN
     Route: 065
  4. HALOPERIDOL INJECTION (MANUFACTURER UNKNOWN) [Suspect]
     Active Substance: HALOPERIDOL LACTATE
     Indication: SUICIDAL IDEATION
     Dosage: UNKNOWN
     Route: 065
  5. FLUOXETINE [Suspect]
     Active Substance: FLUOXETINE HYDROCHLORIDE
     Indication: SUICIDAL IDEATION
     Dosage: UNKNOWN
     Route: 065
  6. CITALOPRAM [Suspect]
     Active Substance: CITALOPRAM HYDROBROMIDE
     Indication: SUICIDAL IDEATION
     Dosage: UNKNOWN
     Route: 065
  7. TACROLIMUS. [Suspect]
     Active Substance: TACROLIMUS
     Indication: SUICIDAL IDEATION
     Dosage: UNKNOWN
     Route: 065

REACTIONS (2)
  - Tremor [Recovering/Resolving]
  - Acute kidney injury [Recovering/Resolving]
